FAERS Safety Report 19065184 (Version 3)
Quarter: 2021Q4

REPORT INFORMATION
  Report Type: Spontaneous
  Country: DE (occurrence: DE)
  Receive Date: 20210327
  Receipt Date: 20211118
  Transmission Date: 20220304
  Serious: Yes (Hospitalization, Other)
  Sender: FDA-Public Use
  Company Number: DE-002147023-NVSC2021DE047582

PATIENT
  Age: 73 Year
  Sex: Male

DRUGS (12)
  1. ICLUSIG [Suspect]
     Active Substance: PONATINIB
     Indication: Product used for unknown indication
     Dosage: UNK UNK, QD
     Route: 065
  2. PANTOPRAZOLE SODIUM [Suspect]
     Active Substance: PANTOPRAZOLE SODIUM
     Indication: Product used for unknown indication
     Dosage: UNK UNK, QD
     Route: 065
  3. METFORMIN HYDROCHLORIDE [Suspect]
     Active Substance: METFORMIN HYDROCHLORIDE
     Indication: Product used for unknown indication
     Dosage: 500 MILLIGRAM, BID
     Route: 065
  4. VALSARTAN [Suspect]
     Active Substance: VALSARTAN
     Indication: Product used for unknown indication
     Dosage: UNK, QD
     Route: 065
  5. ALLOPURINOL [Suspect]
     Active Substance: ALLOPURINOL
     Indication: Product used for unknown indication
     Dosage: 300 MILLIGRAM, QD
     Route: 065
  6. TORSEMIDE [Suspect]
     Active Substance: TORSEMIDE
     Indication: Product used for unknown indication
     Dosage: 10 MILLIGRAM, QD
     Route: 065
  7. LACTULOSE [Suspect]
     Active Substance: LACTULOSE
     Indication: Product used for unknown indication
     Dosage: 1 MILLILITER, TID
     Route: 065
  8. ALDACTONE [Suspect]
     Active Substance: SPIRONOLACTONE
     Indication: Product used for unknown indication
     Dosage: UNK UNK, QD
     Route: 065
  9. PIPERACILLIN SODIUM\TAZOBACTAM SODIUM [Suspect]
     Active Substance: PIPERACILLIN SODIUM\TAZOBACTAM SODIUM
     Indication: Product used for unknown indication
     Dosage: UNK UNK, TID
     Route: 065
  10. BISOPROLOL [Suspect]
     Active Substance: BISOPROLOL
     Indication: Product used for unknown indication
     Dosage: UNK, QD
     Route: 065
  11. SIMVASTATIN [Suspect]
     Active Substance: SIMVASTATIN
     Indication: Product used for unknown indication
     Dosage: UNK, QD
     Route: 065
  12. MOVICOL [Suspect]
     Active Substance: POLYETHYLENE GLYCOL 3350\POTASSIUM CHLORIDE\SODIUM BICARBONATE\SODIUM CHLORIDE
     Indication: Product used for unknown indication
     Dosage: UNK, TID
     Route: 065

REACTIONS (31)
  - Bronchiectasis [Unknown]
  - Interstitial lung disease [Unknown]
  - Diverticulitis [Unknown]
  - Osteochondrosis [Unknown]
  - Nephrocalcinosis [Unknown]
  - Hypoventilation [Unknown]
  - Type 2 diabetes mellitus [Unknown]
  - Abdominal pain [Unknown]
  - Pancreatitis [Recovering/Resolving]
  - Pneumonia [Unknown]
  - Inguinal hernia [Unknown]
  - C-reactive protein increased [Recovering/Resolving]
  - International normalised ratio increased [Unknown]
  - Adrenal cyst [Unknown]
  - Activated partial thromboplastin time prolonged [Recovering/Resolving]
  - Immature granulocyte count increased [Unknown]
  - Benign prostatic hyperplasia [Unknown]
  - Red cell distribution width increased [Not Recovered/Not Resolved]
  - Activated partial thromboplastin time shortened [Not Recovered/Not Resolved]
  - Periarthritis calcarea [Unknown]
  - Articular calcification [Unknown]
  - Adrenal adenoma [Unknown]
  - Renal cyst [Unknown]
  - Haematocrit decreased [Not Recovered/Not Resolved]
  - Red blood cell count decreased [Not Recovered/Not Resolved]
  - Haemoglobin decreased [Recovered/Resolved]
  - Hypertension [Recovered/Resolved]
  - Lymphocyte count decreased [Not Recovered/Not Resolved]
  - Constipation [Recovering/Resolving]
  - Lipase increased [Unknown]
  - Chest pain [Unknown]

NARRATIVE: CASE EVENT DATE: 20200622
